FAERS Safety Report 16162410 (Version 2)
Quarter: 2019Q2

REPORT INFORMATION
  Report Type: Spontaneous
  Country: PT (occurrence: PT)
  Receive Date: 20190405
  Receipt Date: 20190423
  Transmission Date: 20190711
  Serious: Yes (Life-Threatening, Hospitalization, Other)
  Sender: FDA-Public Use
  Company Number: PT-TEVA-2019-PT-1033338

PATIENT
  Age: 38 Year
  Sex: Female

DRUGS (9)
  1. ALPRAZOLAM. [Suspect]
     Active Substance: ALPRAZOLAM
     Dosage: OVERDOSE 40MG
     Route: 065
  2. CODEINE [Suspect]
     Active Substance: CODEINE
     Indication: PRODUCT USED FOR UNKNOWN INDICATION
     Dosage: 300 MILLIGRAM DAILY;
     Route: 065
  3. QUETIAPINE. [Suspect]
     Active Substance: QUETIAPINE
     Indication: PRODUCT USED FOR UNKNOWN INDICATION
     Dosage: OVERDOSE 9 GRAME
     Route: 065
  4. AMOXICILLIN W/CLAVULANIC ACID [Suspect]
     Active Substance: AMOXICILLIN\CLAVULANIC ACID
     Indication: PNEUMONIA
     Route: 065
  5. ALPRAZOLAM. [Suspect]
     Active Substance: ALPRAZOLAM
     Indication: PRODUCT USED FOR UNKNOWN INDICATION
     Dosage: 20 MILLIGRAM DAILY;
     Route: 065
  6. ACETOMINOPHEN [Suspect]
     Active Substance: ACETAMINOPHEN
     Indication: PRODUCT USED FOR UNKNOWN INDICATION
     Dosage: 5 MILLIGRAM DAILY;
     Route: 065
  7. VENLAFAXINE [Suspect]
     Active Substance: VENLAFAXINE HYDROCHLORIDE
     Indication: PRODUCT USED FOR UNKNOWN INDICATION
     Dosage: OVERDOSE 3GRAME
     Route: 065
  8. ACETOMINOPHEN [Suspect]
     Active Substance: ACETAMINOPHEN
     Dosage: OVERDOSE 15G
     Route: 065
  9. CODEINE [Suspect]
     Active Substance: CODEINE
     Dosage: OVERDOSE 900MG
     Route: 065

REACTIONS (14)
  - Delirium [Unknown]
  - Coma [Unknown]
  - Drug abuse [Unknown]
  - Intentional overdose [Unknown]
  - Liver injury [Unknown]
  - Agitation [Unknown]
  - Renal papillary necrosis [Unknown]
  - Neurological symptom [Unknown]
  - Multiple organ dysfunction syndrome [Unknown]
  - Respiratory disorder [Unknown]
  - Distributive shock [Unknown]
  - Vocal cord paralysis [Unknown]
  - Cardiac dysfunction [Unknown]
  - Dependence [Unknown]
